FAERS Safety Report 7211267-9 (Version None)
Quarter: 2010Q4

REPORT INFORMATION
  Report Type: 
  Country: None (occurrence: None)
  Receive Date: 20101228
  Receipt Date: 20101217
  Transmission Date: 20110411
  Serious: Yes (Hospitalization, Other)
  Sender: FDA-Public Use
  Company Number: MPS1-1000400

PATIENT
  Age: 16 Year
  Sex: Female

DRUGS (1)
  1. ALDURAZYME [Suspect]
     Indication: MUCOPOLYSACCHARIDOSIS I
     Dosage: 100 U/KG, 1X/W, INTRAVENOUS
     Route: 042
     Dates: start: 20020101

REACTIONS (5)
  - CARPAL TUNNEL SYNDROME [None]
  - DISLOCATION OF VERTEBRA [None]
  - LIGAMENT DISORDER [None]
  - MYELOPATHY [None]
  - PARAESTHESIA [None]
